FAERS Safety Report 8310121-9 (Version None)
Quarter: 2012Q2

REPORT INFORMATION
  Report Type: 
  Country: None (occurrence: None)
  Receive Date: 20120425
  Receipt Date: 20120417
  Transmission Date: 20120825
  Serious: Yes (Hospitalization, Other)
  Sender: FDA-Public Use
  Company Number: US-BAYER-2012-037656

PATIENT
  Age: 45 Year
  Sex: Female
  Weight: 65.079 kg

DRUGS (7)
  1. IBUPROFEN (ADVIL) [Concomitant]
  2. MACROBID [Concomitant]
     Dosage: 100 MG, BID
     Route: 048
     Dates: start: 20111107
  3. ASPIRIN [Concomitant]
  4. YASMIN [Suspect]
     Indication: CONTRACEPTION
     Dosage: UNK
     Dates: start: 20080201, end: 20111101
  5. YAZ [Suspect]
     Dosage: UNK
     Dates: end: 20111101
  6. DROSPIRENONE AND ETHINYL ESTRADIOL [Suspect]
     Dosage: UNK
     Dates: start: 20080201, end: 20111101
  7. MACROBID [Concomitant]
     Dosage: 100 MG, BID
     Route: 048
     Dates: start: 20111109, end: 20111111

REACTIONS (8)
  - PULMONARY EMBOLISM [None]
  - PAIN [None]
  - INJURY [None]
  - ANXIETY [None]
  - DEEP VEIN THROMBOSIS [None]
  - PULMONARY INFARCTION [None]
  - GENERAL PHYSICAL HEALTH DETERIORATION [None]
  - EMOTIONAL DISTRESS [None]
